FAERS Safety Report 24174576 (Version 1)
Quarter: 2024Q3

REPORT INFORMATION
  Report Type: Spontaneous
  Country: CN (occurrence: CN)
  Receive Date: 20240805
  Receipt Date: 20240805
  Transmission Date: 20241017
  Serious: Yes (Hospitalization)
  Sender: BAXTER
  Company Number: None

PATIENT
  Age: 49 Year
  Sex: Female
  Weight: 55 kg

DRUGS (3)
  1. CYCLOPHOSPHAMIDE [Suspect]
     Active Substance: CYCLOPHOSPHAMIDE
     Indication: Breast mass
     Dosage: 1000 MG, ONE TIME IN 21 DAYS, DILUTED WITH 50 ML OF 0.9 SODIUM CHLORIDE, START TIME: AT 09:10 AM
     Route: 041
     Dates: start: 20240708, end: 20240708
  2. CYCLOPHOSPHAMIDE [Suspect]
     Active Substance: CYCLOPHOSPHAMIDE
     Indication: Breast cancer female
  3. SODIUM CHLORIDE [Suspect]
     Active Substance: SODIUM CHLORIDE
     Indication: Medication dilution
     Dosage: (0.9) 50 ML, ONE TIME IN 21 DAYS, USED TO DILUTE 1000 MG OF CYCLOPHOSPHAMIDE, START TIME: 09:10 AM
     Route: 041
     Dates: start: 20240708, end: 20240708

REACTIONS (1)
  - White blood cell count decreased [Recovering/Resolving]

NARRATIVE: CASE EVENT DATE: 20240713
